FAERS Safety Report 9172858 (Version 1)
Quarter: 2013Q1

REPORT INFORMATION
  Report Type: Spontaneous
  Country: IT (occurrence: IT)
  Receive Date: 20130319
  Receipt Date: 20130319
  Transmission Date: 20140127
  Serious: Yes (Hospitalization)
  Sender: FDA-Public Use
  Company Number: IT-JNJFOC-20130305622

PATIENT
  Age: 25 Year
  Sex: Female
  Weight: 43 kg

DRUGS (7)
  1. REMICADE [Suspect]
     Indication: CROHN^S DISEASE
     Dosage: 100 MG STRENGTH
     Route: 042
     Dates: start: 20130218
  2. REMICADE [Suspect]
     Indication: CROHN^S DISEASE
     Dosage: 100 MG STRENGTH
     Route: 042
     Dates: start: 20130306, end: 20130306
  3. REMICADE [Suspect]
     Indication: CROHN^S DISEASE
     Dosage: 100 MG STRENGTH
     Route: 042
     Dates: start: 201303
  4. MESALAZINE [Concomitant]
     Route: 048
     Dates: start: 20020101, end: 20130306
  5. DELTACORTENE [Concomitant]
     Route: 048
     Dates: start: 20050101, end: 20130306
  6. BE-TOTAL [Concomitant]
     Dosage: AS NEEDED
     Route: 048
  7. PARACETAMOL [Concomitant]
     Route: 048

REACTIONS (3)
  - Chills [Recovered/Resolved]
  - Skin burning sensation [Recovered/Resolved]
  - Infusion related reaction [Recovered/Resolved]
